FAERS Safety Report 10563107 (Version 2)
Quarter: 2015Q1

REPORT INFORMATION
  Report Type: Report from Study
  Country: CA (occurrence: CA)
  Receive Date: 20141104
  Receipt Date: 20150202
  Transmission Date: 20150720
  Serious: Yes (Other)
  Sender: FDA-Public Use
  Company Number: CA-SA-2014SA147327

PATIENT
  Age: 44 Year
  Sex: Female
  Weight: 64 kg

DRUGS (29)
  1. ACTEMRA [Suspect]
     Active Substance: TOCILIZUMAB
     Dosage: FREQUENCY- EVERY 4 WEEKS
     Route: 042
  2. SERTRALINE [Concomitant]
     Active Substance: SERTRALINE HYDROCHLORIDE
     Dates: start: 2011
  3. TRAZODONE [Concomitant]
     Active Substance: TRAZODONE HYDROCHLORIDE
     Dates: start: 2011
  4. VALPROIC ACID. [Concomitant]
     Active Substance: VALPROIC ACID
     Dates: start: 2002
  5. VALPROIC ACID. [Concomitant]
     Active Substance: VALPROIC ACID
  6. PREDNISONE. [Concomitant]
     Active Substance: PREDNISONE
     Dates: start: 20121214
  7. ACTEMRA [Suspect]
     Active Substance: TOCILIZUMAB
     Dosage: FREQUENCY- EVERY 4 WEEKS
     Route: 042
  8. ACTEMRA [Suspect]
     Active Substance: TOCILIZUMAB
     Dosage: FREQUENCY- EVERY 4 WEEKS
     Route: 042
  9. ACTEMRA [Suspect]
     Active Substance: TOCILIZUMAB
     Dosage: FREQUENCY- EVERY 4 WEEKS
     Route: 042
  10. ACTEMRA [Suspect]
     Active Substance: TOCILIZUMAB
     Dosage: FREQUENCY- EVERY 4 WEEKS
     Route: 042
  11. METHOTREXATE [Suspect]
     Active Substance: METHOTREXATE
     Route: 065
     Dates: start: 20110601
  12. FERROUS GLUCONATE [Concomitant]
     Active Substance: FERROUS GLUCONATE
     Dates: start: 20130317
  13. ACTEMRA [Suspect]
     Active Substance: TOCILIZUMAB
     Dosage: FREQUENCY- EVERY 4 WEEKS
     Route: 042
  14. METHOTREXATE [Suspect]
     Active Substance: METHOTREXATE
     Route: 048
     Dates: start: 1994, end: 2015
  15. SERTRALINE [Concomitant]
     Active Substance: SERTRALINE HYDROCHLORIDE
  16. ACTEMRA [Suspect]
     Active Substance: TOCILIZUMAB
     Dosage: FREQUENCY- EVERY 4 WEEKS
     Route: 042
  17. NAPROXEN. [Suspect]
     Active Substance: NAPROXEN
     Route: 048
     Dates: start: 1994
  18. RABEPRAZOLE [Concomitant]
     Active Substance: RABEPRAZOLE
     Dates: start: 2003
  19. ZOPICLONE [Concomitant]
     Active Substance: ZOPICLONE
     Dates: start: 1998
  20. GABAPENTIN. [Concomitant]
     Active Substance: GABAPENTIN
     Dates: start: 2004
  21. ACTEMRA [Suspect]
     Active Substance: TOCILIZUMAB
     Dosage: FREQUENCY- EVERY 4 WEEKS
     Route: 042
  22. ACTEMRA [Suspect]
     Active Substance: TOCILIZUMAB
     Dosage: FREQUENCY- EVERY 4 WEEKS
     Route: 042
  23. ACTEMRA [Suspect]
     Active Substance: TOCILIZUMAB
     Dosage: FREQUENCY- EVERY 4 WEEKS
     Route: 042
  24. FOLIC ACID. [Concomitant]
     Active Substance: FOLIC ACID
  25. PARACETAMOL/OXYCODONE HYDROCHLORIDE [Concomitant]
  26. ARAVA [Suspect]
     Active Substance: LEFLUNOMIDE
     Route: 065
     Dates: start: 20111130
  27. ARTHROTEC [Concomitant]
     Active Substance: DICLOFENAC SODIUM\MISOPROSTOL
     Dates: start: 20090821
  28. GABAPENTIN. [Concomitant]
     Active Substance: GABAPENTIN
  29. NEXIUM [Concomitant]
     Active Substance: ESOMEPRAZOLE MAGNESIUM
     Dates: start: 20130306

REACTIONS (57)
  - Muscle spasms [Unknown]
  - Upper respiratory tract infection [Recovered/Resolved]
  - Gastrointestinal disorder [Unknown]
  - Paraesthesia [Recovered/Resolved]
  - Haemoglobin decreased [Unknown]
  - Abdominal discomfort [Unknown]
  - Abnormal dreams [Unknown]
  - Agitation [Unknown]
  - Burnout syndrome [Unknown]
  - Fatigue [Unknown]
  - Gastritis [Unknown]
  - Musculoskeletal pain [Unknown]
  - Neck pain [Unknown]
  - Weight decreased [Unknown]
  - Dry mouth [Recovered/Resolved]
  - Loss of consciousness [Recovered/Resolved]
  - Malaise [Unknown]
  - Nausea [Recovered/Resolved]
  - Sinusitis [Recovering/Resolving]
  - Catheter site infection [Unknown]
  - Dysarthria [Recovered/Resolved]
  - Hypoaesthesia [Recovered/Resolved]
  - Influenza like illness [Unknown]
  - Lower respiratory tract infection [Unknown]
  - Neuralgia [Unknown]
  - Oral herpes [Unknown]
  - Pain in extremity [Unknown]
  - Pallor [Unknown]
  - Spinal pain [Unknown]
  - Anxiety [Unknown]
  - Diarrhoea [Unknown]
  - Vomiting [Unknown]
  - Helicobacter infection [Recovered/Resolved]
  - Migraine [Recovered/Resolved]
  - Oedema [Unknown]
  - Sinusitis [Unknown]
  - Blood iron decreased [Unknown]
  - Vomiting [Unknown]
  - Fibromyalgia [Unknown]
  - Arthralgia [Unknown]
  - Bronchitis [Unknown]
  - Contusion [Unknown]
  - Musculoskeletal chest pain [Unknown]
  - Nausea [Unknown]
  - Blood alkaline phosphatase decreased [Unknown]
  - Irritability [Unknown]
  - Nasopharyngitis [Unknown]
  - Pain [Recovered/Resolved]
  - Rheumatoid arthritis [Unknown]
  - Asthenia [Recovered/Resolved]
  - Headache [Unknown]
  - Cerebral disorder [Unknown]
  - Joint swelling [Unknown]
  - Sleep disorder [Unknown]
  - Abdominal pain [Unknown]
  - Abdominal pain upper [Unknown]
  - Dyspnoea [Unknown]

NARRATIVE: CASE EVENT DATE: 20120727
